FAERS Safety Report 6638565-1 (Version None)
Quarter: 2010Q1

REPORT INFORMATION
  Report Type: 
  Country: None (occurrence: None)
  Receive Date: 20100301
  Receipt Date: 20090608
  Transmission Date: 20100710
  Serious: Yes (Hospitalization)
  Sender: FDA-Public Use
  Company Number: RB-16569-2009

PATIENT
  Age: 65 Year
  Sex: Female

DRUGS (2)
  1. SUBOXONE [Suspect]
     Indication: DRUG USE FOR UNKNOWN INDICATION
     Dosage: DOSING INFORMATION UNKNOWN. PATIENT HAS BEEN ON AND OFF SUBOXONE FOR YEARS. UNKNOWN
  2. SEROQUEL [Suspect]
     Indication: DRUG USE FOR UNKNOWN INDICATION
     Dosage: TOOK LARGE DOSES. UNKOWN
     Dates: end: 20090601

REACTIONS (2)
  - DRUG TOXICITY [None]
  - MENTAL STATUS CHANGES [None]
